FAERS Safety Report 4396742-7 (Version None)
Quarter: 2004Q3

REPORT INFORMATION
  Report Type: 
  Country: None (occurrence: None)
  Receive Date: 20040709
  Receipt Date: 20040701
  Transmission Date: 20050211
  Serious: Yes (Death)
  Sender: FDA-Public Use
  Company Number: 2004221935JP

PATIENT
  Age: 75 Year
  Sex: Male

DRUGS (10)
  1. HALCION [Suspect]
     Indication: INSOMNIA
     Dosage: 0.125 MG/DAY, ORAL
     Route: 048
     Dates: start: 20040426
  2. DAIKENCHU-TO (CHINESE ERBAL MEDICNE) [Suspect]
     Dosage: ORAL
     Route: 048
  3. SOFALCONE (SOFALCONE) [Suspect]
     Dosage: ORAL
     Route: 048
  4. MEXITIL [Suspect]
     Dosage: ORAL
     Route: 048
  5. CATACLOT (OZAGREL SODIUM) [Suspect]
     Dosage: 80 MG, BID, IV
     Route: 042
     Dates: start: 20040526
  6. SENNOSIDE A+B (SENNOSIDE A+B) [Concomitant]
  7. MERISLON (BETAHISTINE HYDROCHLORIDE) [Concomitant]
  8. TRAVELMIN (DIPHOPHYLLINE, DIPHENHYDRAMINE SALICYLATE) [Concomitant]
  9. CEROCRAL (IFENPRODIL TARTRATE) [Concomitant]
  10. ASPIRIN [Concomitant]

REACTIONS (2)
  - CEREBRAL INFARCTION [None]
  - HEPATITIS FULMINANT [None]
